FAERS Safety Report 8076247-2 (Version None)
Quarter: 2012Q1

REPORT INFORMATION
  Report Type: 
  Country: None (occurrence: None)
  Receive Date: 20120127
  Receipt Date: 20120123
  Transmission Date: 20120608
  Serious: Yes (Hospitalization, Other)
  Sender: FDA-Public Use
  Company Number: GB-ROCHE-1028431

PATIENT
  Sex: Female
  Weight: 95 kg

DRUGS (2)
  1. STEROID NOS [Concomitant]
  2. MABTHERA [Suspect]
     Indication: RHEUMATOID ARTHRITIS
     Dates: start: 20090416

REACTIONS (6)
  - NEUTROPENIC SEPSIS [None]
  - ANAEMIA [None]
  - NEUTROPENIA [None]
  - CHILLS [None]
  - DRUG DISPENSING ERROR [None]
  - PYREXIA [None]
